FAERS Safety Report 5317783-9 (Version None)
Quarter: 2007Q2

REPORT INFORMATION
  Report Type: 
  Country: None (occurrence: None)
  Receive Date: 20070507
  Receipt Date: 20070503
  Transmission Date: 20071010
  Serious: Yes (Other)
  Sender: FDA-Public Use
  Company Number: US-BAYER-200710355BWH

PATIENT
  Age: 64 Year
  Sex: Male
  Weight: 82 kg

DRUGS (5)
  1. NEXAVAR [Suspect]
     Indication: RENAL CELL CARCINOMA STAGE UNSPECIFIED
     Dosage: TOTAL DAILY DOSE: 800 MG  UNIT DOSE: 200 MG
     Route: 048
     Dates: start: 20060520, end: 20070206
  2. LOPRESSOR [Concomitant]
  3. ALLOPURINOL [Concomitant]
  4. ZOMETA [Concomitant]
  5. UNKNOWN DIURETIC [Concomitant]

REACTIONS (1)
  - RENAL CELL CARCINOMA STAGE UNSPECIFIED [None]
